FAERS Safety Report 5625100-X (Version None)
Quarter: 2008Q1

REPORT INFORMATION
  Report Type: 
  Country: None (occurrence: None)
  Receive Date: 20080213
  Receipt Date: 20080201
  Transmission Date: 20080703
  Serious: Yes (Other)
  Sender: FDA-Public Use
  Company Number: BR-PFIZER INC-2008011204

PATIENT
  Sex: Female

DRUGS (5)
  1. TOLTERODINE TARTRATE [Suspect]
     Indication: HYPERTONIC BLADDER
     Route: 048
     Dates: start: 20070101, end: 20070101
  2. VALSARTAN [Concomitant]
     Route: 048
  3. INDAPAMIDE [Concomitant]
     Route: 048
  4. DISGREN [Concomitant]
     Route: 048
  5. LESCOL [Concomitant]
     Route: 048

REACTIONS (2)
  - CONFUSIONAL STATE [None]
  - MALAISE [None]
